FAERS Safety Report 19929681 (Version 3)
Quarter: 2021Q4

REPORT INFORMATION
  Report Type: Spontaneous
  Country: US (occurrence: US)
  Receive Date: 20211007
  Receipt Date: 20211224
  Transmission Date: 20220304
  Serious: Yes (Hospitalization)
  Sender: FDA-Public Use
  Company Number: NVSC2021US222000

PATIENT
  Age: 58 Year
  Sex: Female

DRUGS (1)
  1. KESIMPTA [Suspect]
     Active Substance: OFATUMUMAB
     Indication: Product used for unknown indication
     Dosage: 20 MG
     Route: 065
     Dates: start: 20210914

REACTIONS (7)
  - Fall [Unknown]
  - Eye pain [Unknown]
  - Dysarthria [Unknown]
  - Gait disturbance [Unknown]
  - Headache [Unknown]
  - Dizziness [Unknown]
  - Product dose omission issue [Unknown]

NARRATIVE: CASE EVENT DATE: 20210919
